FAERS Safety Report 17012771 (Version 1)
Quarter: 2019Q4

REPORT INFORMATION
  Report Type: Spontaneous
  Country: US (occurrence: US)
  Receive Date: 20191109
  Receipt Date: 20191109
  Transmission Date: 20200122
  Serious: No
  Sender: FDA-Public Use
  Company Number: US-GLAXOSMITHKLINE-US2019197569

PATIENT
  Sex: Female

DRUGS (1)
  1. BENLYSTA [Suspect]
     Active Substance: BELIMUMAB
     Indication: SYSTEMIC LUPUS ERYTHEMATOSUS
     Dosage: UNK
     Route: 042
     Dates: start: 2018

REACTIONS (7)
  - Dizziness [Unknown]
  - Nasal congestion [Unknown]
  - Vomiting [Unknown]
  - White blood cell count abnormal [Unknown]
  - Pain in extremity [Unknown]
  - Platelet disorder [Unknown]
  - Rhinorrhoea [Unknown]
